FAERS Safety Report 21520738 (Version 1)
Quarter: 2022Q4

REPORT INFORMATION
  Report Type: Spontaneous
  Country: CA (occurrence: CA)
  Receive Date: 20221028
  Receipt Date: 20221028
  Transmission Date: 20230113
  Serious: Yes (Life-Threatening, Hospitalization)
  Sender: FDA-Public Use
  Company Number: CA-TEVA-2022-CA-2819715

PATIENT
  Age: 73 Year
  Sex: Male

DRUGS (3)
  1. CARBAMAZEPINE [Suspect]
     Active Substance: CARBAMAZEPINE
     Indication: Trigeminal neuralgia
     Dosage: 200 MILLIGRAM DAILY; 41.0 DAYS
     Route: 048
  2. ATORVASTATIN [Concomitant]
     Active Substance: ATORVASTATIN
     Indication: Product used for unknown indication
     Route: 065
  3. HYDROCHLOROTHIAZIDE\TELMISARTAN [Concomitant]
     Active Substance: HYDROCHLOROTHIAZIDE\TELMISARTAN
     Indication: Product used for unknown indication

REACTIONS (8)
  - Cough [Unknown]
  - Drug reaction with eosinophilia and systemic symptoms [Unknown]
  - Hepatitis [Unknown]
  - Lymphadenopathy [Unknown]
  - Pruritus [Unknown]
  - Pyrexia [Unknown]
  - Rash erythematous [Unknown]
  - Rash pustular [Unknown]
